FAERS Safety Report 9732312 (Version 3)
Quarter: 2013Q4

REPORT INFORMATION
  Report Type: Spontaneous
  Country: DE (occurrence: DE)
  Receive Date: 20131204
  Receipt Date: 20131223
  Transmission Date: 20140711
  Serious: Yes (Other)
  Sender: FDA-Public Use
  Company Number: DE-SA-2013SA107304

PATIENT
  Sex: Male

DRUGS (6)
  1. COAPROVEL [Suspect]
     Indication: HYPERTENSION
     Dosage: DOSE UNIT: 300/12.5 MG/DAY
     Route: 048
  2. INSPRA [Suspect]
     Indication: HYPERTENSION
     Dosage: DOSE UNIT: 50 MG/DAY
     Route: 048
  3. CORTISONE [Suspect]
     Indication: RHEUMATIC DISORDER
     Route: 048
  4. CORTISONE [Suspect]
     Indication: SYNOVIAL CYST
     Route: 048
  5. CORTISONE [Suspect]
     Indication: RHEUMATIC DISORDER
     Route: 048
  6. CORTISONE [Suspect]
     Indication: SYNOVIAL CYST
     Route: 048

REACTIONS (19)
  - Polymyalgia rheumatica [Recovering/Resolving]
  - Drug ineffective [Recovering/Resolving]
  - Blood potassium decreased [Recovering/Resolving]
  - Blood aldosterone increased [Recovering/Resolving]
  - Renin decreased [Recovering/Resolving]
  - Muscle spasms [Recovering/Resolving]
  - Muscle spasms [Recovering/Resolving]
  - Arthralgia [Unknown]
  - Mobility decreased [Recovering/Resolving]
  - C-reactive protein increased [Recovering/Resolving]
  - Arthritis [Recovering/Resolving]
  - Heart rate increased [Recovering/Resolving]
  - Sunburn [Recovering/Resolving]
  - Cough [Unknown]
  - Fatigue [Recovering/Resolving]
  - Dyspepsia [Recovering/Resolving]
  - Headache [Recovering/Resolving]
  - Sleep disorder [Recovering/Resolving]
  - Myalgia [Recovering/Resolving]
